FAERS Safety Report 8137903-0 (Version None)
Quarter: 2012Q1

REPORT INFORMATION
  Report Type: 
  Country: None (occurrence: None)
  Receive Date: 20120103
  Receipt Date: 20110906
  Transmission Date: 20120608
  Serious: No
  Sender: FDA-Public Use
  Company Number: AE-2011-001351

PATIENT
  Age: 53 Year
  Sex: Female
  Weight: 56.6996 kg

DRUGS (4)
  1. PEGASYS [Concomitant]
  2. VICOPROFEN (VICOPROFEN)C [Concomitant]
  3. INCIVEK [Suspect]
     Dosage: 2250 MG (750 MG, 3 IN 1 D), ORAL
     Route: 048
     Dates: start: 20110821
  4. RIBAVIRIN [Concomitant]

REACTIONS (3)
  - CHILLS [None]
  - CONSTIPATION [None]
  - PYREXIA [None]
